FAERS Safety Report 4535337-9 (Version None)
Quarter: 2004Q4

REPORT INFORMATION
  Report Type: 
  Country: None (occurrence: None)
  Receive Date: 20041214
  Receipt Date: 20040913
  Transmission Date: 20050328
  Serious: No
  Sender: FDA-Public Use
  Company Number: 2004235112US

PATIENT
  Age: 86 Year
  Sex: Female
  Weight: 63.5 kg

DRUGS (8)
  1. BEXTRA [Suspect]
     Dosage: 10 MG, QD, ORAL
     Route: 048
     Dates: start: 20040911, end: 20040911
  2. TENORMIN [Concomitant]
  3. LISINOPRIL [Concomitant]
  4. LEVOXYL [Concomitant]
  5. AVALIDE [Concomitant]
  6. TRIMPEX [Concomitant]
  7. PREMARIN H-C VAGINAL CREAM [Concomitant]
  8. ASPIRIN [Concomitant]

REACTIONS (6)
  - DIZZINESS [None]
  - HYPERSENSITIVITY [None]
  - MICTURITION FREQUENCY DECREASED [None]
  - NAUSEA [None]
  - OEDEMA PERIPHERAL [None]
  - WEIGHT INCREASED [None]
